FAERS Safety Report 6302855-2 (Version None)
Quarter: 2009Q3

REPORT INFORMATION
  Report Type: 
  Country: None (occurrence: None)
  Receive Date: 20090810
  Receipt Date: 20090728
  Transmission Date: 20100115
  Serious: Yes (Hospitalization)
  Sender: FDA-Public Use
  Company Number: SE-ELI_LILLY_AND_COMPANY-SE200907006746

PATIENT
  Age: 21 Year
  Sex: Female

DRUGS (2)
  1. STRATTERA [Suspect]
     Dosage: 3.2 G AT ONCE
  2. ATARAX [Concomitant]
     Dosage: 750 MG, UNKNOWN
     Route: 065

REACTIONS (7)
  - ANXIETY [None]
  - CONFUSIONAL STATE [None]
  - INCOHERENT [None]
  - INTENTIONAL OVERDOSE [None]
  - NYSTAGMUS [None]
  - OBSTRUCTIVE AIRWAYS DISORDER [None]
  - TACHYCARDIA [None]
